FAERS Safety Report 4517808-4 (Version None)
Quarter: 2004Q4

REPORT INFORMATION
  Report Type: 
  Country: None (occurrence: None)
  Receive Date: 20041203
  Receipt Date: 20041123
  Transmission Date: 20050328
  Serious: Yes (Hospitalization)
  Sender: FDA-Public Use
  Company Number: AU-MERCK-0411AUS00185

PATIENT
  Age: 70 Year
  Sex: Male

DRUGS (5)
  1. ZOCOR [Suspect]
     Route: 048
     Dates: start: 19880421
  2. ASPIRIN [Suspect]
     Indication: MYOCARDIAL ISCHAEMIA
     Route: 065
  3. DIGOXIN [Suspect]
     Indication: CARDIOMYOPATHY
     Route: 065
  4. ATENOLOL [Suspect]
     Indication: ESSENTIAL HYPERTENSION
     Route: 048
  5. DOTHIEPIN HYDROCHLORIDE [Suspect]
     Indication: DEPRESSION
     Route: 065
     Dates: start: 19890508, end: 19900114

REACTIONS (4)
  - AMNESIA [None]
  - ATAXIA [None]
  - CEREBRAL HAEMORRHAGE [None]
  - CONVULSION [None]
